FAERS Safety Report 7200709-0 (Version None)
Quarter: 2010Q4

REPORT INFORMATION
  Report Type: 
  Country: None (occurrence: None)
  Receive Date: 20101228
  Receipt Date: 20101220
  Transmission Date: 20110411
  Serious: Yes (Hospitalization, Other)
  Sender: FDA-Public Use
  Company Number: US-JNJFOC-20100305074

PATIENT
  Sex: Male
  Weight: 181.44 kg

DRUGS (2)
  1. STELARA [Suspect]
     Indication: PSORIASIS
     Route: 058
  2. TACLONEX [Concomitant]
     Route: 061

REACTIONS (19)
  - AFFECT LABILITY [None]
  - AGITATION [None]
  - ATAXIA [None]
  - DYSARTHRIA [None]
  - DYSPNOEA [None]
  - ENCEPHALOPATHY [None]
  - FACE OEDEMA [None]
  - HEADACHE [None]
  - HEMIANOPIA HOMONYMOUS [None]
  - HYPERHIDROSIS [None]
  - HYPERSENSITIVITY [None]
  - MUSCULAR WEAKNESS [None]
  - NAUSEA [None]
  - OEDEMA [None]
  - PHOTOPHOBIA [None]
  - PSYCHIATRIC SYMPTOM [None]
  - RASH GENERALISED [None]
  - SLEEP TERROR [None]
  - SWELLING [None]
